FAERS Safety Report 7999966 (Version 3)
Quarter: 2013Q1

REPORT INFORMATION
  Report Type: Report from Study
  Country: GR (occurrence: GR)
  Receive Date: 20110621
  Receipt Date: 20130215
  Transmission Date: 20140127
  Serious: Yes (Hospitalization)
  Sender: FDA-Public Use
  Company Number: GR-JNJFOC-20110605584

PATIENT
  Age: 72 Year
  Sex: Male
  Weight: 62 kg

DRUGS (6)
  1. ABIRATERONE ACETATE [Suspect]
     Indication: PROSTATE CANCER METASTATIC
     Route: 048
  2. ABIRATERONE ACETATE [Suspect]
     Indication: PROSTATE CANCER METASTATIC
     Route: 048
     Dates: start: 20110610, end: 20110616
  3. FENTANYL [Concomitant]
     Indication: PAIN
     Dosage: DOSE:50
     Route: 062
     Dates: start: 20110207
  4. GLUCOPHAGE [Concomitant]
     Indication: TYPE 2 DIABETES MELLITUS
     Dosage: DOSE:850
     Route: 048
     Dates: start: 20110125
  5. SOLOSA [Concomitant]
     Indication: DIABETES MELLITUS
     Route: 048
     Dates: start: 20110125
  6. PREDNISOLONE [Concomitant]
     Indication: PROSTATE CANCER METASTATIC
     Route: 048
     Dates: start: 20110608

REACTIONS (2)
  - Anaemia [Recovered/Resolved]
  - Urinary tract infection [Recovered/Resolved]
